FAERS Safety Report 7211026-7 (Version None)
Quarter: 2011Q1

REPORT INFORMATION
  Report Type: 
  Country: None (occurrence: None)
  Receive Date: 20110105
  Receipt Date: 20101228
  Transmission Date: 20110831
  Serious: Yes (Other)
  Sender: FDA-Public Use
  Company Number: DE-SANOFI-AVENTIS-2010SA072636

PATIENT

DRUGS (5)
  1. RAMIPRIL [Suspect]
     Route: 065
  2. RAMIPRIL/HYDROCHLOROTHIAZIDE [Suspect]
     Route: 065
  3. VALSARTAN [Suspect]
     Route: 065
  4. OXALIPLATIN [Suspect]
     Route: 065
  5. GLIMEPIRIDE [Suspect]
     Route: 065

REACTIONS (1)
  - RENAL FAILURE ACUTE [None]
